FAERS Safety Report 17367248 (Version 2)
Quarter: 2020Q1

REPORT INFORMATION
  Report Type: Report from Study
  Country: CO (occurrence: CO)
  Receive Date: 20200204
  Receipt Date: 20200218
  Transmission Date: 20200409
  Serious: Yes (Other)
  Sender: FDA-Public Use
  Company Number: NVSC2020CO027335

PATIENT
  Age: 52 Year
  Sex: Male
  Weight: 83 kg

DRUGS (1)
  1. COSENTYX [Suspect]
     Active Substance: SECUKINUMAB
     Indication: PSORIATIC ARTHROPATHY
     Dosage: 1 DF, QMO
     Route: 058
     Dates: start: 20190712

REACTIONS (5)
  - Blood pressure fluctuation [Not Recovered/Not Resolved]
  - Malaise [Unknown]
  - Syncope [Recovered/Resolved]
  - Fatigue [Not Recovered/Not Resolved]
  - Amnesia [Not Recovered/Not Resolved]

NARRATIVE: CASE EVENT DATE: 20190122
